FAERS Safety Report 7183767-1 (Version None)
Quarter: 2010Q4

REPORT INFORMATION
  Report Type: 
  Country: None (occurrence: None)
  Receive Date: 20101220
  Receipt Date: 20101220
  Transmission Date: 20110411
  Serious: Yes (Hospitalization)
  Sender: FDA-Public Use
  Company Number: None

PATIENT
  Age: 76 Year
  Sex: Male
  Weight: 80.9 kg

DRUGS (7)
  1. COREG [Suspect]
     Indication: HYPERTENSION
     Dosage: 25MG BID PO  CHRONIC W/RECENT INCREASE
     Route: 048
  2. ALLOPURINOL [Concomitant]
  3. RAMIPRIL [Concomitant]
  4. HUMULIN R [Concomitant]
  5. LIPITOR [Concomitant]
  6. M.V.I. [Concomitant]
  7. SSI HUMALOG [Concomitant]

REACTIONS (1)
  - BRADYCARDIA [None]
